FAERS Safety Report 21139549 (Version 1)
Quarter: 2022Q3

REPORT INFORMATION
  Report Type: Spontaneous
  Country: ES (occurrence: ES)
  Receive Date: 20220727
  Receipt Date: 20220727
  Transmission Date: 20221027
  Serious: Yes (Death, Hospitalization, Other)
  Sender: FDA-Public Use
  Company Number: None

PATIENT
  Age: 69 Year
  Sex: Female
  Weight: 69.2 kg

DRUGS (1)
  1. YESCARTA [Suspect]
     Active Substance: AXICABTAGENE CILOLEUCEL
     Indication: Diffuse large B-cell lymphoma refractory
     Dosage: UNK
     Route: 042
     Dates: start: 20220112, end: 20220112

REACTIONS (3)
  - Organising pneumonia [Fatal]
  - Septic shock [Fatal]
  - COVID-19 [Fatal]

NARRATIVE: CASE EVENT DATE: 20220222
